FAERS Safety Report 23508192 (Version 1)
Quarter: 2024Q1

REPORT INFORMATION
  Report Type: Spontaneous
  Country: FR (occurrence: None)
  Receive Date: 20240209
  Receipt Date: 20240209
  Transmission Date: 20240410
  Serious: Yes (Other)
  Sender: FDA-Public Use
  Company Number: 2024A026270

PATIENT
  Age: 72 Year
  Sex: Male
  Weight: 105 kg

DRUGS (11)
  1. BYDUREON [Suspect]
     Active Substance: EXENATIDE
     Indication: Type 2 diabetes mellitus
     Route: 058
     Dates: start: 20211112, end: 20220317
  2. CHOLECALCIFEROL [Concomitant]
     Active Substance: CHOLECALCIFEROL
  3. DIGOXIN [Concomitant]
     Active Substance: DIGOXIN
  4. METFORMIN PAMOATE [Concomitant]
     Active Substance: METFORMIN PAMOATE
  5. BISOPROLOL FUMARATE [Concomitant]
     Active Substance: BISOPROLOL FUMARATE
  6. REPAGLINIDE [Concomitant]
     Active Substance: REPAGLINIDE
  7. ACETAMINOPHEN [Concomitant]
     Active Substance: ACETAMINOPHEN
  8. PERINDOPRIL [Concomitant]
     Active Substance: PERINDOPRIL
  9. FLUINDIONE [Concomitant]
     Active Substance: FLUINDIONE
  10. KAYEXALATE [Concomitant]
     Active Substance: SODIUM POLYSTYRENE SULFONATE
  11. ATORVASTATIN [Concomitant]
     Active Substance: ATORVASTATIN

REACTIONS (1)
  - Pancreatitis [Recovered/Resolved]

NARRATIVE: CASE EVENT DATE: 20220315
